FAERS Safety Report 8450736-0 (Version None)
Quarter: 2012Q2

REPORT INFORMATION
  Report Type: 
  Country: None (occurrence: None)
  Receive Date: 20120613
  Receipt Date: 20120606
  Transmission Date: 20120825
  Serious: Yes (Hospitalization, Other)
  Sender: FDA-Public Use
  Company Number: AUR-APL-2012-02589

PATIENT
  Age: 78 Year
  Sex: Male
  Weight: 99.32 kg

DRUGS (3)
  1. SUNITINIB MALATE [Suspect]
     Indication: BONE NEOPLASM MALIGNANT
     Dosage: (50 MG, 1 D), UNKNOWN
     Dates: start: 20120529, end: 20120602
  2. METOPROLOL TARTRATE [Suspect]
     Indication: HYPERTENSION
     Dosage: (25 MG), UNKNOWN, 25 MG (12.5 MG, 2 IN 1 D)
  3. FENTANYL [Concomitant]

REACTIONS (2)
  - HYPOTENSION [None]
  - GRAND MAL CONVULSION [None]
